FAERS Safety Report 9405542 (Version 2)
Quarter: 2013Q4

REPORT INFORMATION
  Report Type: Spontaneous
  Country: CA (occurrence: None)
  Receive Date: 20130715
  Receipt Date: 20131025
  Transmission Date: 20140711
  Serious: Yes (Disabling)
  Sender: FDA-Public Use
  Company Number: 2013-002196

PATIENT
  Age: 62 Year
  Sex: Female

DRUGS (5)
  1. ACTONEL [Suspect]
     Route: 048
     Dates: start: 2005
  2. VALACYCLORVIR HYDROCHLORIDE (VALACICLOVIR) [Concomitant]
  3. CALCIUM 500+D  (CALCIUM, COLECALCIFEROL) [Concomitant]
  4. PROMETRIUM [Concomitant]
  5. ESTRACE (ESTRADIOL) [Concomitant]

REACTIONS (6)
  - Tendonitis [None]
  - Mobility decreased [None]
  - Arthralgia [None]
  - Pain [None]
  - Arthralgia [None]
  - Arthralgia [None]
